FAERS Safety Report 10091029 (Version 2)
Quarter: 2014Q2

REPORT INFORMATION
  Report Type: Report from Study
  Country: AT (occurrence: AT)
  Receive Date: 20140421
  Receipt Date: 20140424
  Transmission Date: 20141212
  Serious: Yes (Death)
  Sender: FDA-Public Use
  Company Number: AT-GILEAD-2014-0099926

PATIENT
  Age: 1 Year
  Sex: Male

DRUGS (1)
  1. CIDOFOVIR [Suspect]
     Indication: ADENOVIRUS INFECTION
     Route: 065

REACTIONS (1)
  - Drug ineffective for unapproved indication [Fatal]
